FAERS Safety Report 18650342 (Version 1)
Quarter: 2020Q4

REPORT INFORMATION
  Report Type: Spontaneous
  Country: CA (occurrence: CA)
  Receive Date: 20201222
  Receipt Date: 20201222
  Transmission Date: 20210114
  Serious: Yes (Hospitalization)
  Sender: FDA-Public Use
  Company Number: CA-JNJFOC-20201231290

PATIENT
  Age: 66 Year
  Sex: Female

DRUGS (15)
  1. FISH OIL [Concomitant]
     Active Substance: FISH OIL
  2. VITAMIN B COMPLEX WITH C [Concomitant]
     Active Substance: ASCORBIC ACID\CALCIUM PANTOTHENATE\CYANOCOBALAMIN\NIACINAMIDE\PYRIDOXINE HYDROCHLORIDE\RIBOFLAVIN\THIAMINE MONONITRATE
  3. TOPAMAX [Suspect]
     Active Substance: TOPIRAMATE
     Indication: MIGRAINE PROPHYLAXIS
     Route: 048
  4. BACLOFEN. [Concomitant]
     Active Substance: BACLOFEN
  5. GABAPENTIN. [Concomitant]
     Active Substance: GABAPENTIN
  6. LANSOPRAZOLE. [Concomitant]
     Active Substance: LANSOPRAZOLE
     Route: 048
  7. MULTIVITAMINS [VITAMINS NOS] [Concomitant]
     Active Substance: VITAMINS
  8. VITAMIN C [Concomitant]
     Active Substance: ASCORBIC ACID
  9. DULOXETINE. [Concomitant]
     Active Substance: DULOXETINE
  10. FOLIC ACID. [Concomitant]
     Active Substance: FOLIC ACID
  11. ALENDRONATE [Concomitant]
     Active Substance: ALENDRONATE SODIUM
  12. VITAMIN E [Concomitant]
     Active Substance: .ALPHA.-TOCOPHEROL
  13. CALCIUM;COLECALCIFEROL [Concomitant]
     Active Substance: CALCIUM\CHOLECALCIFEROL
  14. FAMOTIDINE. [Concomitant]
     Active Substance: FAMOTIDINE
  15. VITAMIN D [ERGOCALCIFEROL] [Concomitant]
     Active Substance: ERGOCALCIFEROL

REACTIONS (3)
  - Ureterolithiasis [Unknown]
  - Urosepsis [Unknown]
  - Ureteric obstruction [Unknown]
